FAERS Safety Report 8821459 (Version 1)
Quarter: 2012Q4

REPORT INFORMATION
  Report Type: 
  Country: US (occurrence: US)
  Receive Date: 20121002
  Receipt Date: 20121002
  Transmission Date: 20130627
  Serious: Yes (Death)
  Sender: FDA-Public Use
  Company Number: US-ROCHE-548964

PATIENT
  Sex: Female
  Weight: 89.8 kg

DRUGS (2)
  1. RITUXAN [Suspect]
     Indication: RHEUMATOID ARTHRITIS
     Dosage: 1000 MG, SINGLE
     Route: 042
  2. RITUXAN [Suspect]
     Indication: ARTHRITIS
     Dosage: 1000 MG, SINGLE
     Route: 042
     Dates: start: 20071012, end: 20071210

REACTIONS (1)
  - Breast cancer metastatic [Fatal]
